FAERS Safety Report 8830053 (Version 1)
Quarter: 2012Q4

REPORT INFORMATION
  Report Type: Spontaneous
  Country: US (occurrence: None)
  Receive Date: 20121004
  Receipt Date: 20121004
  Transmission Date: 20130627
  Serious: Yes (Hospitalization)
  Sender: FDA-Public Use
  Company Number: 1435147

PATIENT
  Age: 79 Year
  Sex: Male

DRUGS (14)
  1. METOCLOPRAMIDE [Suspect]
     Indication: GASTROINTESTINAL MOTILITY DISORDER
     Dosage: six hours
(not otherwise specified)
     Route: 042
  2. CARBIDOPA LEVODOPA [Concomitant]
  3. LISINOPRIL [Concomitant]
  4. FUROSEMIDE) [Concomitant]
  5. METOPROLOL TARTRATE [Concomitant]
  6. POLYETHYLENE GLYCOL [Concomitant]
  7. INSULIN HUMAN INJECTION, ISOPHANE [Concomitant]
  8. INSULIN, REGULAR [Concomitant]
  9. ERTAPENEM [Concomitant]
  10. ONDANSETRON [Concomitant]
  11. (GLYCOPYRROLATE	 /00196202/) [Concomitant]
  12. FAMOTIDINE [Concomitant]
  13. MORPHINE SULFATE [Concomitant]
  14. NEOSTIGMINE METHYLSULFATE [Concomitant]

REACTIONS (6)
  - Confusional state [None]
  - Agitation [None]
  - Restlessness [None]
  - Parkinson^s disease [None]
  - Unresponsive to stimuli [None]
  - Metabolic encephalopathy [None]
